FAERS Safety Report 22139924 (Version 1)
Quarter: 2023Q1

REPORT INFORMATION
  Report Type: Spontaneous
  Country: None (occurrence: US)
  Receive Date: 20230327
  Receipt Date: 20230327
  Transmission Date: 20230418
  Serious: No
  Sender: FDA-Public Use
  Company Number: US-Ajanta Pharma USA Inc.-2139552

PATIENT
  Age: 71 Year
  Sex: Female

DRUGS (1)
  1. CHOLESTYRAMINE [Suspect]
     Active Substance: CHOLESTYRAMINE
     Indication: Product used for unknown indication
     Route: 048
     Dates: start: 20230117, end: 202301

REACTIONS (6)
  - Cough [Recovered/Resolved]
  - Choking sensation [Recovered/Resolved]
  - Product taste abnormal [Recovered/Resolved]
  - Product use complaint [Recovered/Resolved]
  - Product physical consistency issue [Recovered/Resolved]
  - Product substitution issue [Recovered/Resolved]

NARRATIVE: CASE EVENT DATE: 20230117
